FAERS Safety Report 10671062 (Version 2)
Quarter: 2014Q4

REPORT INFORMATION
  Report Type: Spontaneous
  Country: US (occurrence: US)
  Receive Date: 20141223
  Receipt Date: 20141223
  Transmission Date: 20150529
  Serious: No
  Sender: FDA-Public Use
  Company Number: US-MYLANLABS-2014S1000931

PATIENT
  Age: 61 Year
  Sex: Female
  Weight: 58.51 kg

DRUGS (4)
  1. LANSOPRAZOLE DELAYED-RELEASE CAPSULES, USP [Suspect]
     Active Substance: LANSOPRAZOLE
     Indication: GASTROOESOPHAGEAL REFLUX DISEASE
  2. DILTIAZEM [Concomitant]
     Active Substance: DILTIAZEM
     Dosage: UNK
  3. LANSOPRAZOLE DELAYED-RELEASE CAPSULES, USP [Suspect]
     Active Substance: LANSOPRAZOLE
     Dosage: 30 MG,BID
     Route: 048
  4. LANSOPRAZOLE DELAYED-RELEASE CAPSULES, USP [Suspect]
     Active Substance: LANSOPRAZOLE
     Indication: DYSPEPSIA

REACTIONS (2)
  - Dyspepsia [Recovered/Resolved]
  - Drug ineffective [Recovered/Resolved]

NARRATIVE: CASE EVENT DATE: 20140106
